FAERS Safety Report 7118633-0 (Version None)
Quarter: 2010Q4

REPORT INFORMATION
  Report Type: 
  Country: None (occurrence: None)
  Receive Date: 20101123
  Receipt Date: 20101115
  Transmission Date: 20110411
  Serious: Yes (Other)
  Sender: FDA-Public Use
  Company Number: IT-JNJFOC-20101105299

PATIENT
  Age: 51 Year
  Sex: Female

DRUGS (2)
  1. TOPAMAX [Suspect]
     Indication: ILL-DEFINED DISORDER
     Route: 048
  2. TAVOR [Suspect]
     Indication: ILL-DEFINED DISORDER
     Route: 048

REACTIONS (2)
  - INTENTIONAL OVERDOSE [None]
  - SELF INJURIOUS BEHAVIOUR [None]
